FAERS Safety Report 10685197 (Version 1)
Quarter: 2014Q4

REPORT INFORMATION
  Report Type: Spontaneous
  Country: US (occurrence: None)
  Receive Date: 20141230
  Receipt Date: 20141230
  Transmission Date: 20150529
  Serious: No
  Sender: FDA-Public Use
  Company Number: None

PATIENT
  Sex: Female
  Weight: 72.58 kg

DRUGS (9)
  1. ALLOPRONAL [Concomitant]
  2. CIPROFLOXACIN HCL [Suspect]
     Active Substance: CIPROFLOXACIN HYDROCHLORIDE
     Indication: UPPER RESPIRATORY TRACT INFECTION
     Dosage: 500 MG 1X DAY, 1XDAY, 1 A DAY, MOUTH WITH WATER
     Route: 048
     Dates: start: 20141205, end: 20141217
  3. LASIX [Concomitant]
     Active Substance: FUROSEMIDE
  4. ACOPHY [Concomitant]
  5. VITAMIN D [Concomitant]
     Active Substance: CHOLECALCIFEROL
  6. DIOVAN [Concomitant]
     Active Substance: VALSARTAN
  7. LOPRSEN [Concomitant]
  8. ASPIRIN. [Concomitant]
     Active Substance: ASPIRIN
  9. ZESTIC [Concomitant]

REACTIONS (6)
  - Rash [None]
  - Dyspnoea [None]
  - Insomnia [None]
  - Cardiac disorder [None]
  - Headache [None]
  - Vision blurred [None]
